FAERS Safety Report 5829509-0 (Version None)
Quarter: 2008Q3

REPORT INFORMATION
  Report Type: 
  Country: None (occurrence: None)
  Receive Date: 20080729
  Receipt Date: 20080715
  Transmission Date: 20090109
  Serious: Yes (Hospitalization)
  Sender: FDA-Public Use
  Company Number: 15048

PATIENT
  Age: 59 Year
  Sex: Female
  Weight: 40.8237 kg

DRUGS (1)
  1. MORPHINE SULFATE [Suspect]
     Indication: ARTHRITIS
     Dosage: 60 MG TID ORALLY
     Route: 048
     Dates: start: 20060101, end: 20080101

REACTIONS (11)
  - ACTIVITIES OF DAILY LIVING IMPAIRED [None]
  - DEPRESSED LEVEL OF CONSCIOUSNESS [None]
  - DYSPNOEA [None]
  - FAECAL INCONTINENCE [None]
  - FALL [None]
  - FEELING ABNORMAL [None]
  - GAIT DISTURBANCE [None]
  - MEMORY IMPAIRMENT [None]
  - OVERDOSE [None]
  - SOMNOLENCE [None]
  - URINARY INCONTINENCE [None]
